FAERS Safety Report 8853068 (Version 1)
Quarter: 2012Q4

REPORT INFORMATION
  Report Type: 
  Country: US (occurrence: US)
  Receive Date: 20121022
  Receipt Date: 20121022
  Transmission Date: 20130627
  Serious: Yes (Other)
  Sender: FDA-Public Use
  Company Number: US-WATSON-2012-17968

PATIENT
  Age: 59 Year
  Sex: Female

DRUGS (12)
  1. LORAZEPAM [Suspect]
     Indication: ANXIETY
     Dosage: ^4 tablets per day^
     Route: 065
  2. LORAZEPAM [Suspect]
     Dosage: 1 mg, daily PRN
     Route: 065
  3. LORAZEPAM [Suspect]
     Dosage: 1 mg, daily PRN
     Route: 065
  4. CITALOPRAM [Concomitant]
     Indication: DEPRESSION
     Dosage: 40 mg, daily
  5. IMIPRAMINE [Concomitant]
     Indication: DEPRESSION
     Dosage: 1509 mg, qhs
  6. TRIFLUOPERAZINE [Concomitant]
     Indication: DEPRESSION
     Dosage: 5 mg, daily
  7. DIGOXIN [Concomitant]
     Indication: PRODUCT USED FOR UNKNOWN INDICATION
     Dosage: 62.5 mg, daily
  8. FUROSEMIDE [Concomitant]
     Indication: PRODUCT USED FOR UNKNOWN INDICATION
     Dosage: 240 mg, daily
  9. METFORMIN [Concomitant]
     Indication: PRODUCT USED FOR UNKNOWN INDICATION
     Dosage: 1000 mg, daily
  10. MULTIVITAMIN                       /00097801/ [Concomitant]
     Indication: PRODUCT USED FOR UNKNOWN INDICATION
     Dosage: 1 tablet daily
  11. NIACIN [Concomitant]
     Indication: PRODUCT USED FOR UNKNOWN INDICATION
     Dosage: 100 mg, daily
  12. POTASSIUM CHLORIDE [Concomitant]
     Indication: PRODUCT USED FOR UNKNOWN INDICATION
     Dosage: 80 mEq per day

REACTIONS (2)
  - Catatonia [Recovered/Resolved]
  - Drug withdrawal syndrome [Recovered/Resolved]
